FAERS Safety Report 24195182 (Version 1)
Quarter: 2024Q3

REPORT INFORMATION
  Report Type: Spontaneous
  Country: CN (occurrence: CN)
  Receive Date: 20240809
  Receipt Date: 20240809
  Transmission Date: 20241017
  Serious: Yes (Hospitalization, Disabling)
  Sender: ELI LILLY AND CO
  Company Number: CN-Merck Healthcare KGaA-2024041739

PATIENT
  Age: 89 Year
  Sex: Female
  Weight: 47 kg

DRUGS (6)
  1. ERBITUX [Suspect]
     Active Substance: CETUXIMAB
     Indication: Colon cancer metastatic
     Dosage: 500 MG, OTHER
     Route: 042
     Dates: start: 20240704
  2. FLUOROURACIL [Suspect]
     Active Substance: FLUOROURACIL
     Indication: Colon cancer metastatic
     Dosage: 2.75 G, QOD
     Route: 042
     Dates: start: 20240704, end: 20240705
  3. FLUOROURACIL [Suspect]
     Active Substance: FLUOROURACIL
     Dosage: 0.5 G, DAILY
     Route: 042
     Dates: start: 20240704, end: 20240704
  4. SODIUM CHLORIDE [Concomitant]
     Active Substance: SODIUM CHLORIDE
     Indication: Medication dilution
     Dosage: 250 ML, DAILY
     Route: 042
     Dates: start: 20240704, end: 20240704
  5. SODIUM CHLORIDE [Concomitant]
     Active Substance: SODIUM CHLORIDE
     Dosage: 200 ML, QOD
     Route: 042
     Dates: start: 20240704, end: 20240705
  6. SODIUM CHLORIDE [Concomitant]
     Active Substance: SODIUM CHLORIDE
     Dosage: 20 ML, DAILY
     Route: 042
     Dates: start: 20240704, end: 20240704

REACTIONS (2)
  - White blood cell count decreased [Recovered/Resolved]
  - Neutrophil count decreased [Recovered/Resolved]

NARRATIVE: CASE EVENT DATE: 20240716
